FAERS Safety Report 6207422-7 (Version None)
Quarter: 2009Q2

REPORT INFORMATION
  Report Type: 
  Country: None (occurrence: None)
  Receive Date: 20090526
  Receipt Date: 20090515
  Transmission Date: 20091009
  Serious: Yes (Death, Other)
  Sender: FDA-Public Use
  Company Number: CHPA2009US11836

PATIENT
  Sex: Female

DRUGS (1)
  1. EX-LAX LAXATIVE UNKNOWN FORMULA (NCH)(UNKNOWN) UNKNOWN [Suspect]
     Dosage: ORAL
     Route: 048

REACTIONS (1)
  - DRUG DEPENDENCE [None]
